FAERS Safety Report 9733714 (Version 2)
Quarter: 2013Q4

REPORT INFORMATION
  Report Type: Other
  Country: US (occurrence: US)
  Receive Date: 20131205
  Receipt Date: 20131216
  Transmission Date: 20140711
  Serious: Yes (Life-Threatening, Other)
  Sender: FDA-Public Use
  Company Number: US-RB-061158-13

PATIENT
  Age: 9 Month
  Sex: Male

DRUGS (1)
  1. SUBOXONE FILM [Suspect]
     Indication: ACCIDENTAL EXPOSURE TO PRODUCT BY CHILD
     Dosage: SUBOXONE FILM; INGESTION ONE TIME OF HALF A 8 MG SUBOXONE FILM
     Route: 065

REACTIONS (3)
  - Coma [Unknown]
  - Respiratory failure [Unknown]
  - Accidental exposure to product by child [Recovered/Resolved]
